FAERS Safety Report 13879133 (Version 1)
Quarter: 2017Q3

REPORT INFORMATION
  Report Type: Spontaneous
  Country: JP (occurrence: JP)
  Receive Date: 20170817
  Receipt Date: 20170817
  Transmission Date: 20171127
  Serious: Yes (Disabling, Other)
  Sender: FDA-Public Use
  Company Number: JP-CELGENEUS-JPN-20170804575

PATIENT
  Age: 69 Year
  Sex: Female
  Weight: 39 kg

DRUGS (3)
  1. GEMCITABINE [Suspect]
     Active Substance: GEMCITABINE\GEMCITABINE HYDROCHLORIDE
     Indication: PANCREATIC CARCINOMA METASTATIC
     Dosage: 1320 MILLIGRAM
     Route: 065
     Dates: start: 20170328, end: 20170523
  2. ABRAXANE [Suspect]
     Active Substance: PACLITAXEL
     Indication: PANCREATIC CARCINOMA METASTATIC
     Dosage: 165 MILLIGRAM
     Route: 041
     Dates: start: 20170328
  3. ABRAXANE [Suspect]
     Active Substance: PACLITAXEL
     Dosage: 82 MILLIGRAM
     Route: 041
     Dates: start: 20170523, end: 20170523

REACTIONS (3)
  - Intraocular pressure increased [Unknown]
  - Choroidal neovascularisation [Unknown]
  - Visual acuity reduced [Recovered/Resolved]

NARRATIVE: CASE EVENT DATE: 20170502
